FAERS Safety Report 7113643-1 (Version None)
Quarter: 2010Q4

REPORT INFORMATION
  Report Type: 
  Country: None (occurrence: None)
  Receive Date: 20101119
  Receipt Date: 20101111
  Transmission Date: 20110411
  Serious: Yes (Life-Threatening)
  Sender: FDA-Public Use
  Company Number: DK-ROCHE-741148

PATIENT
  Sex: Female
  Weight: 80 kg

DRUGS (2)
  1. PEGASYS [Suspect]
     Indication: HEPATITIS C
     Dosage: FREQUENCY: QWK
     Route: 058
     Dates: start: 20091124, end: 20100915
  2. REBETOL [Concomitant]
     Indication: HEPATITIS C
     Route: 048
     Dates: start: 20091124, end: 20100915

REACTIONS (3)
  - HYPERTHYROIDISM [None]
  - MANIA [None]
  - TYPE 1 DIABETES MELLITUS [None]
